FAERS Safety Report 20230733 (Version 2)
Quarter: 2022Q2

REPORT INFORMATION
  Report Type: Spontaneous
  Country: US (occurrence: US)
  Receive Date: 20211227
  Receipt Date: 20220413
  Transmission Date: 20220721
  Serious: Yes (Other)
  Sender: FDA-Public Use
  Company Number: US-NOVOPROD-878439

PATIENT
  Age: 86 Year
  Sex: Female

DRUGS (1)
  1. OZEMPIC [Suspect]
     Active Substance: SEMAGLUTIDE
     Indication: Product used for unknown indication
     Dosage: 0.25 MG
     Route: 058
     Dates: start: 20211115

REACTIONS (5)
  - Breast cancer [Unknown]
  - Blood pressure increased [Unknown]
  - Stress [Unknown]
  - Blood glucose increased [Unknown]
  - Product label confusion [Unknown]

NARRATIVE: CASE EVENT DATE: 20210101
